FAERS Safety Report 11424911 (Version 2)
Quarter: 2015Q4

REPORT INFORMATION
  Report Type: Spontaneous
  Country: US (occurrence: US)
  Receive Date: 20150827
  Receipt Date: 20151023
  Transmission Date: 20160304
  Serious: Yes (Hospitalization, Other)
  Sender: FDA-Public Use
  Company Number: US-JAZZ-2015-US-012514

PATIENT
  Sex: Female

DRUGS (1)
  1. XYREM [Suspect]
     Active Substance: SODIUM OXYBATE
     Indication: NARCOLEPSY
     Dosage: 2.25 G, BID
     Route: 048
     Dates: start: 201508, end: 201508

REACTIONS (5)
  - Pelvic inflammatory disease [Unknown]
  - Nephrolithiasis [Unknown]
  - Blood glucose decreased [Unknown]
  - Urinary tract infection [Unknown]
  - Toxic shock syndrome [Unknown]

NARRATIVE: CASE EVENT DATE: 2015
